FAERS Safety Report 5766975-3 (Version None)
Quarter: 2008Q2

REPORT INFORMATION
  Report Type: 
  Country: None (occurrence: None)
  Receive Date: 20080612
  Receipt Date: 20080530
  Transmission Date: 20081010
  Serious: Yes (Death, Other)
  Sender: FDA-Public Use
  Company Number: US-WATSON-2008-03379

PATIENT
  Sex: Female

DRUGS (18)
  1. HYDROCODONE BITARTRATE/ACETAMINOPHEN UNKNOWN STRENGTH (WATSON) [Suspect]
     Indication: PAIN
     Dosage: UNK
     Dates: start: 19880101
  2. PROMETHAZINE (WATSON LABORATORIES) [Suspect]
     Indication: ANAPHYLACTIC REACTION
     Dosage: 25 MG, EVERY 4-6 HOURS
     Route: 048
     Dates: start: 20060101
  3. CHANTIX [Suspect]
     Indication: SMOKING CESSATION THERAPY
     Dosage: UNK MG, UNK
     Route: 048
     Dates: start: 20070802, end: 20070811
  4. PREVACID [Suspect]
     Indication: NAUSEA
     Dosage: UNK MG, DAILY
     Route: 048
     Dates: start: 20060101
  5. TEMAZEPAM [Suspect]
     Indication: INSOMNIA
     Dosage: UNK MG, DAILY
     Route: 048
  6. ZOLPIDEM [Suspect]
     Indication: INSOMNIA
     Dosage: UNK MG, DAILY
     Route: 048
  7. MIRTAZAPINE [Suspect]
     Indication: DEPRESSION
     Dosage: UNK MG, DAILY
     Route: 048
     Dates: start: 20000101
  8. ZOFRAN [Suspect]
     Indication: NAUSEA
     Dosage: 8 MG UP TO 3 TIMES A DAY
     Route: 048
     Dates: start: 20070201
  9. KLONOPIN [Concomitant]
     Indication: TACHYCARDIA
     Dosage: UNK
  10. GABAPENTIN [Concomitant]
     Indication: DRUG USE FOR UNKNOWN INDICATION
     Dosage: UNK
  11. LITHIUM CARBONATE [Concomitant]
     Indication: MOOD SWINGS
     Dosage: UNK MG, DAILY
     Route: 048
  12. RISPERDAL [Concomitant]
     Indication: DEPRESSION
     Dosage: UNK MG, DAILY
     Route: 048
     Dates: start: 20030101
  13. TRAZODONE HCL [Concomitant]
     Indication: DEPRESSION
     Dosage: UNK MG, DAILY
     Route: 048
  14. GABAPENTIN [Concomitant]
     Indication: NEURALGIA
     Dosage: 1 UNK, DAILY
  15. PROVIGIL [Concomitant]
     Indication: DRUG USE FOR UNKNOWN INDICATION
     Dosage: UNK
     Route: 048
     Dates: start: 20030101
  16. CLONAZEPAM [Concomitant]
     Indication: TACHYCARDIA
     Dosage: 2MG UP TO 4 TIMES A DAY
  17. METHOCARBAMOL [Concomitant]
     Indication: MUSCLE RELAXANT THERAPY
     Dosage: UNK MG, BID
     Route: 048
  18. ASTELIN                            /00884002/ [Concomitant]
     Indication: SEASONAL ALLERGY
     Route: 045

REACTIONS (4)
  - DRUG INTERACTION [None]
  - DRUG TOXICITY [None]
  - HAEMORRHAGE [None]
  - PULMONARY EMBOLISM [None]
